FAERS Safety Report 22607960 (Version 1)
Quarter: 2023Q2

REPORT INFORMATION
  Report Type: Spontaneous
  Country: IT (occurrence: None)
  Receive Date: 20230616
  Receipt Date: 20230616
  Transmission Date: 20230721
  Serious: Yes (Hospitalization)
  Sender: FDA-Public Use
  Company Number: None

PATIENT
  Age: 14 Year
  Sex: Male
  Weight: 33 kg

DRUGS (2)
  1. CYTARABINE [Suspect]
     Active Substance: CYTARABINE
     Indication: Histiocytosis
     Route: 042
     Dates: start: 20230509, end: 20230513
  2. CYTARABINE [Suspect]
     Active Substance: CYTARABINE
     Indication: Fibrous histiocytoma
     Route: 058
     Dates: start: 20230509, end: 20230513

REACTIONS (1)
  - Febrile bone marrow aplasia [Recovering/Resolving]

NARRATIVE: CASE EVENT DATE: 20230519
